FAERS Safety Report 4384024-9 (Version None)
Quarter: 2004Q2

REPORT INFORMATION
  Report Type: 
  Country: None (occurrence: None)
  Receive Date: 20040618
  Receipt Date: 20040609
  Transmission Date: 20050107
  Serious: Yes (Other)
  Sender: FDA-Public Use
  Company Number: A-CH2003-03437

PATIENT
  Age: 51 Year
  Sex: Female
  Weight: 53 kg

DRUGS (5)
  1. TRACLEER [Suspect]
     Indication: PULMONARY HYPERTENSION
     Dosage: SEE IMAGE
     Route: 048
     Dates: start: 20020313, end: 20020401
  2. TRACLEER [Suspect]
     Indication: PULMONARY HYPERTENSION
     Dosage: SEE IMAGE
     Route: 048
     Dates: start: 20020401
  3. WARFRIN (WARFARIN) [Concomitant]
  4. FUROSEMIDE [Concomitant]
  5. OXYGEN (OXYGEN) [Concomitant]

REACTIONS (1)
  - PLATELET COUNT DECREASED [None]
